FAERS Safety Report 15281183 (Version 1)
Quarter: 2018Q3

REPORT INFORMATION
  Report Type: Spontaneous
  Country: BR (occurrence: BR)
  Receive Date: 20180815
  Receipt Date: 20180815
  Transmission Date: 20181010
  Serious: Yes (Other)
  Sender: FDA-Public Use
  Company Number: BR-BIOMARINAP-BR-2018-119449

PATIENT
  Sex: Female
  Weight: 54 kg

DRUGS (1)
  1. ALDURAZYME [Suspect]
     Active Substance: LARONIDASE
     Indication: MUCOPOLYSACCHARIDOSIS
     Dosage: UNK
     Route: 041
     Dates: start: 20111001

REACTIONS (2)
  - Cervical spinal stenosis [Not Recovered/Not Resolved]
  - Optic nerve compression [Not Recovered/Not Resolved]
